FAERS Safety Report 19532181 (Version 22)
Quarter: 2022Q2

REPORT INFORMATION
  Report Type: Other
  Country: CA (occurrence: None)
  Receive Date: 20210713
  Receipt Date: 20220506
  Transmission Date: 20220721
  Serious: Yes (Hospitalization, Other)
  Sender: FDA-Public Use
  Company Number: CA-ROCHE-2813700

PATIENT
  Age: 66 Year
  Sex: Female
  Weight: 97 kg

DRUGS (8)
  1. TECENTRIQ [Suspect]
     Active Substance: ATEZOLIZUMAB
     Indication: Hepatocellular carcinoma
     Route: 042
     Dates: start: 20210304
  2. AVASTIN [Suspect]
     Active Substance: BEVACIZUMAB
     Indication: Hepatocellular carcinoma
     Dosage: HE RECEIVED BEVACIZUMAB 1485 MG, BASED ON 15MG/KG X99KG.
     Route: 042
     Dates: start: 20210304
  3. COVID-19 VACCINE [Concomitant]
     Dosage: 2ND COVID VACCINE ON JUNE 28TH
  4. LISINOPRIL [Concomitant]
     Active Substance: LISINOPRIL
     Indication: Blood pressure measurement
  5. CEFAZOLIN [Concomitant]
     Active Substance: CEFAZOLIN
  6. ABX [Concomitant]
  7. OCREVUS [Concomitant]
     Active Substance: OCRELIZUMAB
  8. AMOXICILLIN [Concomitant]
     Active Substance: AMOXICILLIN
     Indication: Tooth extraction

REACTIONS (22)
  - Sepsis [Recovered/Resolved]
  - Meningitis [Not Recovered/Not Resolved]
  - Myocarditis [Not Recovered/Not Resolved]
  - Wound [Not Recovered/Not Resolved]
  - Diabetic foot [Not Recovered/Not Resolved]
  - Nausea [Not Recovered/Not Resolved]
  - Vomiting [Unknown]
  - Fatigue [Unknown]
  - Poor venous access [Not Recovered/Not Resolved]
  - Off label use [Unknown]
  - Oral pain [Recovered/Resolved]
  - Anxiety [Recovered/Resolved]
  - Dyspnoea [Recovered/Resolved]
  - Fatigue [Recovered/Resolved]
  - Vision blurred [Not Recovered/Not Resolved]
  - Vision blurred [Recovering/Resolving]
  - Blood glucose increased [Not Recovered/Not Resolved]
  - Rash [Not Recovered/Not Resolved]
  - Musculoskeletal stiffness [Not Recovered/Not Resolved]
  - Blister infected [Recovered/Resolved]
  - Localised infection [Recovered/Resolved]
  - Hyperkeratosis [Not Recovered/Not Resolved]

NARRATIVE: CASE EVENT DATE: 20210413
